FAERS Safety Report 7218975-4 (Version None)
Quarter: 2011Q1

REPORT INFORMATION
  Report Type: 
  Country: None (occurrence: None)
  Receive Date: 20110111
  Receipt Date: 20110106
  Transmission Date: 20110831
  Serious: Yes (Hospitalization)
  Sender: FDA-Public Use
  Company Number: BR-BIOGENIDEC-2010BI041339

PATIENT
  Age: 40 Year
  Sex: Female
  Weight: 70 kg

DRUGS (5)
  1. AVONEX [Suspect]
     Indication: MULTIPLE SCLEROSIS
     Route: 030
     Dates: start: 20030101
  2. VENLAFAXINE [Concomitant]
     Indication: DEPRESSION
  3. OMEPRAZOLE [Concomitant]
     Indication: GASTRITIS
     Dates: start: 20101201
  4. FLUOXETINE [Concomitant]
     Indication: DEPRESSION
     Dates: start: 20100301
  5. AZATHIOPRINE [Concomitant]
     Dates: start: 19970101

REACTIONS (8)
  - MOBILITY DECREASED [None]
  - WEIGHT INCREASED [None]
  - CRYING [None]
  - HYPERTENSION [None]
  - DYSSTASIA [None]
  - ANXIETY [None]
  - MULTIPLE SCLEROSIS RELAPSE [None]
  - VISUAL ACUITY REDUCED [None]
